FAERS Safety Report 13112091 (Version 1)
Quarter: 2017Q1

REPORT INFORMATION
  Report Type: Spontaneous
  Country: HR (occurrence: HR)
  Receive Date: 20170113
  Receipt Date: 20170113
  Transmission Date: 20170428
  Serious: Yes (Hospitalization, Other)
  Sender: FDA-Public Use
  Company Number: HR-ASTRAZENECA-2017SE02775

PATIENT
  Age: 42 Year
  Sex: Male

DRUGS (4)
  1. CERSON [Suspect]
     Active Substance: NITRAZEPAM
     Dosage: 145.0MG UNKNOWN
     Route: 048
     Dates: start: 20161027, end: 20161027
  2. QUETIAPINE. [Suspect]
     Active Substance: QUETIAPINE
     Dosage: 4000.0MG UNKNOWN
     Route: 048
     Dates: start: 20161027, end: 20161027
  3. RIVOTRIL [Suspect]
     Active Substance: CLONAZEPAM
     Dosage: 30.0MG UNKNOWN
     Route: 048
     Dates: start: 20161027, end: 20161027
  4. PRAZINE [Suspect]
     Active Substance: PROMAZINE HYDROCHLORIDE
     Dosage: 350.0MG UNKNOWN
     Route: 048
     Dates: start: 20161027, end: 20161027

REACTIONS (3)
  - Intentional overdose [Unknown]
  - Suicide attempt [Unknown]
  - Somnolence [Unknown]

NARRATIVE: CASE EVENT DATE: 20161027
